FAERS Safety Report 15900045 (Version 1)
Quarter: 2019Q1

REPORT INFORMATION
  Report Type: Spontaneous
  Country: JP (occurrence: JP)
  Receive Date: 20190201
  Receipt Date: 20190201
  Transmission Date: 20190417
  Serious: Yes (Other)
  Sender: FDA-Public Use
  Company Number: JP-SUNOVION-2019SUN000343

PATIENT
  Age: 85 Year
  Sex: Male

DRUGS (2)
  1. LUNESTA [Suspect]
     Active Substance: ESZOPICLONE
     Dosage: 2 MG, QD
     Route: 048
  2. BELSOMRA [Concomitant]
     Active Substance: SUVOREXANT
     Route: 048

REACTIONS (1)
  - Anterograde amnesia [Unknown]
